FAERS Safety Report 11326071 (Version 1)
Quarter: 2015Q3

REPORT INFORMATION
  Report Type: Spontaneous
  Country: CH (occurrence: CH)
  Receive Date: 20150731
  Receipt Date: 20150731
  Transmission Date: 20151125
  Serious: Yes (Hospitalization)
  Sender: FDA-Public Use
  Company Number: CH-BAYER-2015-384159

PATIENT
  Age: 33 Year
  Sex: Female
  Weight: 109 kg

DRUGS (14)
  1. ADALAT [Concomitant]
     Active Substance: NIFEDIPINE
     Indication: ESSENTIAL HYPERTENSION
     Dosage: 30 MG, BID
     Dates: start: 20150406
  2. NORVASC [Concomitant]
     Active Substance: AMLODIPINE BESYLATE
     Indication: ESSENTIAL HYPERTENSION
     Dosage: 10 MG, QD
     Route: 048
     Dates: start: 20150402, end: 20150405
  3. ESIDREX [Concomitant]
     Active Substance: HYDROCHLOROTHIAZIDE
     Indication: OEDEMA PERIPHERAL
     Dosage: 25 MG, QD
     Route: 048
     Dates: start: 20150404, end: 20150404
  4. PHYSIOTENS [Concomitant]
     Active Substance: MOXONIDINE
     Dosage: 0.2 MG, BID
     Route: 048
     Dates: start: 20150404
  5. TRANDATE [Concomitant]
     Active Substance: LABETALOL HYDROCHLORIDE
     Dosage: 200 MG, TID
     Route: 048
     Dates: start: 20150402
  6. DIPIPERON [Concomitant]
     Active Substance: PIPAMPERONE
     Dosage: 40 MG, QD
     Route: 048
     Dates: start: 20150403, end: 20150415
  7. COVERSUM [Concomitant]
     Active Substance: PERINDOPRIL
     Indication: ESSENTIAL HYPERTENSION
     Dosage: UNK
     Route: 048
     Dates: start: 20150410
  8. NEXIUM [Concomitant]
     Active Substance: ESOMEPRAZOLE MAGNESIUM
     Dosage: 40 MG, QD
     Route: 048
     Dates: start: 20150402
  9. TOREM [Concomitant]
     Active Substance: TORSEMIDE
     Dosage: 10 MG, QD
     Route: 048
     Dates: start: 20150410
  10. CIPROXIN [Suspect]
     Active Substance: CIPROFLOXACIN
     Indication: URINARY TRACT INFECTION BACTERIAL
     Dosage: 250 MG, BID
     Route: 048
     Dates: start: 20150410, end: 20150428
  11. CARDURA CR [Concomitant]
     Active Substance: DOXAZOSIN MESYLATE
     Indication: ESSENTIAL HYPERTENSION
     Dosage: 4 MG, BID
     Route: 048
     Dates: start: 20150406
  12. LIQUEMIN [Concomitant]
     Active Substance: HEPARIN SODIUM
     Dosage: 5000 IU, QD
     Route: 058
     Dates: start: 20150413
  13. SPIRONOLACTON [Concomitant]
     Active Substance: SPIRONOLACTONE
     Indication: ESSENTIAL HYPERTENSION
     Dosage: 100 MG, QD
     Route: 048
     Dates: start: 20150405, end: 20150406
  14. VI-DE 3 [Concomitant]
     Active Substance: CHOLECALCIFEROL
     Dosage: 8 GTT, QD
     Dates: start: 20150402

REACTIONS (1)
  - Drug reaction with eosinophilia and systemic symptoms [None]

NARRATIVE: CASE EVENT DATE: 20150424
